FAERS Safety Report 5797805-1 (Version None)
Quarter: 2008Q2

REPORT INFORMATION
  Report Type: 
  Country: None (occurrence: None)
  Receive Date: 20080601
  Receipt Date: 20080219
  Transmission Date: 20081010
  Serious: No
  Sender: FDA-Public Use
  Company Number: US200801000208

PATIENT
  Age: 53 Year
  Sex: Female
  Weight: 114.7 kg

DRUGS (12)
  1. BYETTA [Suspect]
     Indication: TYPE 2 DIABETES MELLITUS
     Dosage: 5 UG, 2/D, SUBCUTANEOUS
     Route: 058
     Dates: start: 20080101, end: 20080101
  2. EXENATIDE PEN, DISPOSABLE DEVICE (EXENATIDE PEN) PEN,DISPOSABLE [Concomitant]
  3. ASPIRIN [Concomitant]
  4. PLAVIX [Concomitant]
  5. CLONIDINE [Concomitant]
  6. LOVASTATIN [Concomitant]
  7. GEMFIBROZIL [Concomitant]
  8. FUROSEMIDE [Concomitant]
  9. NOVOLOG [Concomitant]
  10. INSULIN W/ISOPHANE INSULIN (INSULIN, ISOPHANE INSULIN) [Concomitant]
  11. METOPROLOL TARTRATE [Concomitant]
  12. ENALAPRIL MALEATE [Concomitant]

REACTIONS (7)
  - CHOKING SENSATION [None]
  - GLOSSODYNIA [None]
  - NAUSEA [None]
  - PETECHIAE [None]
  - PHARYNGEAL OEDEMA [None]
  - SWOLLEN TONGUE [None]
  - VOMITING [None]
